FAERS Safety Report 21102305 (Version 2)
Quarter: 2022Q3

REPORT INFORMATION
  Report Type: Report from Study
  Country: US (occurrence: US)
  Receive Date: 20220719
  Receipt Date: 20220726
  Transmission Date: 20221027
  Serious: Yes (Other)
  Sender: FDA-Public Use
  Company Number: US-TAKEDA-2022TUS048387

PATIENT
  Age: 31 Year
  Sex: Female

DRUGS (1)
  1. VORTIOXETINE [Suspect]
     Active Substance: VORTIOXETINE
     Indication: Product used for unknown indication
     Dosage: 15 MILLIGRAM
     Route: 048
     Dates: end: 20220707

REACTIONS (2)
  - Surgery [Recovering/Resolving]
  - Therapy interrupted [Recovering/Resolving]

NARRATIVE: CASE EVENT DATE: 20220707
